FAERS Safety Report 21883408 (Version 1)
Quarter: 2023Q1

REPORT INFORMATION
  Report Type: Spontaneous
  Country: GB (occurrence: GB)
  Receive Date: 20230119
  Receipt Date: 20230119
  Transmission Date: 20230418
  Serious: Yes (Life-Threatening, Hospitalization, Other)
  Sender: FDA-Public Use
  Company Number: GB-EMA-DD-20201013-shaik_i-134529

PATIENT
  Age: 29 Year
  Sex: Male

DRUGS (14)
  1. METHYLPREDNISOLONE [Suspect]
     Active Substance: METHYLPREDNISOLONE
     Indication: Autoimmune disorder
     Dosage: 500 MILLIGRAM DAILY;
     Dates: end: 202008
  2. CLOBAZAM [Suspect]
     Active Substance: CLOBAZAM
     Indication: Temporal lobe epilepsy
     Dosage: 10 MG IN AM, 20 MG IN PM
     Dates: end: 20200822
  3. CLOBAZAM [Suspect]
     Active Substance: CLOBAZAM
     Indication: Partial seizures
     Dosage: 10 MG AM. AND 20 MG PM
     Dates: end: 20200823
  4. BRIVARACETAM [Suspect]
     Active Substance: BRIVARACETAM
     Indication: Temporal lobe epilepsy
     Dosage: 200 MILLIGRAM DAILY;
  5. BRIVARACETAM [Suspect]
     Active Substance: BRIVARACETAM
     Indication: Partial seizures
  6. PERAMPANEL [Suspect]
     Active Substance: PERAMPANEL
     Indication: Epilepsy
     Dates: end: 20200823
  7. FYCOMPA [Suspect]
     Active Substance: PERAMPANEL
     Indication: Temporal lobe epilepsy
     Dosage: 4 MILLIGRAM DAILY;
     Dates: end: 202006
  8. FYCOMPA [Suspect]
     Active Substance: PERAMPANEL
     Indication: Partial seizures
     Dosage: 8 MILLIGRAM DAILY;
     Dates: end: 202007
  9. FYCOMPA [Suspect]
     Active Substance: PERAMPANEL
     Dosage: UNKNOWN DOSE
     Dates: end: 20200823
  10. FYCOMPA [Suspect]
     Active Substance: PERAMPANEL
     Dosage: 2 MILLIGRAM DAILY;
     Dates: end: 202005
  11. FYCOMPA [Suspect]
     Active Substance: PERAMPANEL
     Dosage: 6 MILLIGRAM DAILY;
     Dates: end: 20200822
  12. PREDNISOLONE [Concomitant]
     Active Substance: PREDNISOLONE
     Indication: Product used for unknown indication
  13. ESLICARBAZEPINE [Concomitant]
     Active Substance: ESLICARBAZEPINE
     Indication: Partial seizures
     Dosage: 400MG IN AM, 800MG IN PM
  14. ESLICARBAZEPINE [Concomitant]
     Active Substance: ESLICARBAZEPINE
     Indication: Temporal lobe epilepsy

REACTIONS (10)
  - Suicide attempt [Recovered/Resolved]
  - Intentional overdose [Recovered/Resolved]
  - Psychotic disorder [Recovered/Resolved]
  - Suicidal ideation [Recovering/Resolving]
  - Depressed level of consciousness [Recovered/Resolved]
  - Hallucination, auditory [Recovering/Resolving]
  - Anger [Recovered/Resolved]
  - Memory impairment [Recovered/Resolved]
  - Somnolence [Recovering/Resolving]
  - Abnormal behaviour [Recovered/Resolved]

NARRATIVE: CASE EVENT DATE: 20200501
